FAERS Safety Report 7224608-3 (Version None)
Quarter: 2011Q1

REPORT INFORMATION
  Report Type: 
  Country: None (occurrence: None)
  Receive Date: 20110113
  Receipt Date: 20110105
  Transmission Date: 20110831
  Serious: No
  Sender: FDA-Public Use
  Company Number: US-BAYER-2011-002743

PATIENT
  Sex: Female

DRUGS (5)
  1. NEXAVAR [Suspect]
     Dosage: 200 MG, BID
     Route: 048
  2. ASPIRIN [Concomitant]
  3. ACTOS [Concomitant]
  4. PRAVASTATIN [Concomitant]
  5. METOPROLOL [Concomitant]

REACTIONS (6)
  - INFLUENZA LIKE ILLNESS [None]
  - DECREASED APPETITE [None]
  - NAUSEA [None]
  - HEADACHE [None]
  - CHILLS [None]
  - PYREXIA [None]
